FAERS Safety Report 10720766 (Version 2)
Quarter: 2015Q1

REPORT INFORMATION
  Report Type: Spontaneous
  Country: JP (occurrence: JP)
  Receive Date: 20150119
  Receipt Date: 20150206
  Transmission Date: 20150721
  Serious: Yes (Hospitalization)
  Sender: FDA-Public Use
  Company Number: PHHY2015JP005213

PATIENT
  Age: 43 Year
  Sex: Female

DRUGS (4)
  1. VOLTAREN [Suspect]
     Active Substance: DICLOFENAC SODIUM
     Indication: ARTHRALGIA
     Dosage: 25 MG, UNK
     Route: 048
     Dates: start: 20111007, end: 20111227
  2. VOLTAREN [Suspect]
     Active Substance: DICLOFENAC SODIUM
     Route: 048
     Dates: start: 201110, end: 201112
  3. METHYCOOL [Concomitant]
     Active Substance: METHYLCOBALAMIN
     Indication: PUSTULAR PSORIASIS
     Dosage: 500 MG, TID
     Route: 048
     Dates: start: 20111007, end: 20111116
  4. DERMOVATE [Concomitant]
     Active Substance: CLOBETASOL
     Indication: ANTIINFLAMMATORY THERAPY
     Dosage: 5 G, UNK
     Route: 065
     Dates: start: 20111007, end: 20111007

REACTIONS (2)
  - Drug-induced liver injury [Recovered/Resolved]
  - Nausea [Unknown]

NARRATIVE: CASE EVENT DATE: 20111219
